FAERS Safety Report 21453420 (Version 2)
Quarter: 2022Q4

REPORT INFORMATION
  Report Type: Spontaneous
  Country: ES (occurrence: ES)
  Receive Date: 20221013
  Receipt Date: 20221108
  Transmission Date: 20230113
  Serious: Yes (Hospitalization)
  Sender: FDA-Public Use
  Company Number: ES-TEVA-2022-ES-2082356

PATIENT
  Age: 55 Year
  Sex: Male

DRUGS (3)
  1. MONTELUKAST [Suspect]
     Active Substance: MONTELUKAST SODIUM
     Indication: Gastroenteritis eosinophilic
     Route: 065
  2. PREDNISONE [Suspect]
     Active Substance: PREDNISONE
     Indication: Gastroenteritis eosinophilic
     Route: 048
  3. AZATHIOPRINE [Suspect]
     Active Substance: AZATHIOPRINE
     Indication: Gastroenteritis eosinophilic
     Route: 065

REACTIONS (2)
  - Osteonecrosis [Unknown]
  - Drug ineffective [Unknown]
